FAERS Safety Report 21436590 (Version 1)
Quarter: 2022Q4

REPORT INFORMATION
  Report Type: Spontaneous
  Country: ZA (occurrence: ZA)
  Receive Date: 20221010
  Receipt Date: 20221010
  Transmission Date: 20230112
  Serious: Yes (Other)
  Sender: FDA-Public Use
  Company Number: ZA-CIPLA LTD.-2022ZA05850

PATIENT
  Sex: Male

DRUGS (4)
  1. WARFARIN [Suspect]
     Active Substance: WARFARIN
     Indication: Product used for unknown indication
     Dosage: UNK UNK, 1 TABLET/ 1 AND HALF TABLETS ON SOME DAYS AS PRESCRIBED
     Route: 065
     Dates: start: 2022
  2. AZITHROMYCIN [Suspect]
     Active Substance: AZITHROMYCIN
     Indication: Product used for unknown indication
     Dosage: UNK
     Route: 065
     Dates: start: 202209
  3. EMTRICITABINE\TENOFOVIR DISOPROXIL FUMARATE [Concomitant]
     Active Substance: EMTRICITABINE\TENOFOVIR DISOPROXIL FUMARATE
     Indication: Acquired immunodeficiency syndrome
     Dosage: UNK
     Route: 065
     Dates: start: 2015
  4. ATAZANAVIR [Concomitant]
     Active Substance: ATAZANAVIR
     Indication: Acquired immunodeficiency syndrome
     Dosage: UNK
     Route: 065
     Dates: start: 2015

REACTIONS (7)
  - Anticoagulation drug level below therapeutic [Recovered/Resolved]
  - Bone pain [Not Recovered/Not Resolved]
  - Asthma [Unknown]
  - Limb mass [Unknown]
  - Pain [Unknown]
  - Product substitution issue [Unknown]
  - Dyspnoea [Unknown]

NARRATIVE: CASE EVENT DATE: 20220101
